FAERS Safety Report 8016637-7 (Version None)
Quarter: 2011Q4

REPORT INFORMATION
  Report Type: 
  Country: None (occurrence: None)
  Receive Date: 20111231
  Receipt Date: 20111208
  Transmission Date: 20120403
  Serious: No
  Sender: FDA-Public Use
  Company Number: US-ROXANE LABORATORIES, INC.-2011-RO-01829RO

PATIENT
  Sex: Female

DRUGS (2)
  1. TRAMADOL HCL [Concomitant]
     Indication: SLEEP DISORDER
  2. REQUIP [Suspect]
     Indication: RESTLESS LEGS SYNDROME
     Route: 048
     Dates: start: 20111115

REACTIONS (2)
  - DRUG INEFFECTIVE [None]
  - INSOMNIA [None]
